FAERS Safety Report 8125889-4 (Version None)
Quarter: 2012Q1

REPORT INFORMATION
  Report Type: 
  Country: None (occurrence: None)
  Receive Date: 20120209
  Receipt Date: 20120131
  Transmission Date: 20120608
  Serious: Yes (Hospitalization)
  Sender: FDA-Public Use
  Company Number: US-ELI_LILLY_AND_COMPANY-US201201000326

PATIENT
  Sex: Female
  Weight: 99.138 kg

DRUGS (3)
  1. HUMALOG [Suspect]
     Dosage: 10 U, UNK
     Route: 058
  2. HUMALOG [Suspect]
     Dosage: 13 U, EACH MORNING
     Route: 058
  3. HUMALOG [Suspect]
     Indication: TYPE 2 DIABETES MELLITUS
     Dosage: 13 U, TID

REACTIONS (4)
  - RENAL FAILURE CHRONIC [None]
  - ATRIOVENTRICULAR BLOCK [None]
  - DRUG DISPENSING ERROR [None]
  - SPINAL COLUMN STENOSIS [None]
